FAERS Safety Report 11397137 (Version 1)
Quarter: 2015Q3

REPORT INFORMATION
  Report Type: Report from Study
  Country: ID (occurrence: ID)
  Receive Date: 20150819
  Receipt Date: 20150819
  Transmission Date: 20151125
  Serious: Yes (Other)
  Sender: FDA-Public Use
  Company Number: ID-BAYER-2015-398794

PATIENT
  Age: 76 Year
  Sex: Male

DRUGS (1)
  1. NEXAVAR [Suspect]
     Active Substance: SORAFENIB
     Dosage: 400 MG, DAILY DOSE
     Route: 048
     Dates: start: 20150317

REACTIONS (3)
  - Polyneuropathy [None]
  - Gait disturbance [None]
  - Pain in extremity [None]
